FAERS Safety Report 7947032-4 (Version None)
Quarter: 2011Q4

REPORT INFORMATION
  Report Type: 
  Country: None (occurrence: None)
  Receive Date: 20111129
  Receipt Date: 20110708
  Transmission Date: 20120403
  Serious: No
  Sender: FDA-Public Use
  Company Number: US-ASTRAZENECA-2011SE41006

PATIENT
  Age: 60 Year
  Sex: Male

DRUGS (2)
  1. VIMOVO [Suspect]
     Dosage: 500 MG / 20MG PRN
     Route: 048
     Dates: start: 20110608
  2. CRESTOR [Suspect]
     Indication: BLOOD CHOLESTEROL INCREASED
     Route: 048

REACTIONS (2)
  - OFF LABEL USE [None]
  - DIZZINESS [None]
